FAERS Safety Report 16437838 (Version 2)
Quarter: 2019Q3

REPORT INFORMATION
  Report Type: Spontaneous
  Country: SE (occurrence: SE)
  Receive Date: 20190616
  Receipt Date: 20190708
  Transmission Date: 20191004
  Serious: Yes (Hospitalization, Other)
  Sender: FDA-Public Use
  Company Number: SE-009507513-1906SWE004085

PATIENT
  Age: 22 Year
  Sex: Female

DRUGS (3)
  1. ORGALUTRAN [Concomitant]
     Active Substance: GANIRELIX ACETATE
     Indication: IN VITRO FERTILISATION
     Dosage: 0.25MG/ 0.5ML
  2. FOLLITROPIN ALFA [Suspect]
     Active Substance: FOLLITROPIN
     Indication: IN VITRO FERTILISATION
     Dosage: TOTAL DOSE 950 IU IN 8 DAYS
  3. GONADOTROPIN, CHORIONIC [Suspect]
     Active Substance: CHORIOGONADOTROPIN ALFA
     Indication: IN VITRO FERTILISATION
     Dosage: UNK

REACTIONS (2)
  - Maternal exposure before pregnancy [Recovered/Resolved]
  - Ovarian hyperstimulation syndrome [Recovered/Resolved]
